FAERS Safety Report 9941549 (Version 1)
Quarter: 2014Q1

REPORT INFORMATION
  Report Type: Report from Study
  Country: US (occurrence: US)
  Receive Date: 20140303
  Receipt Date: 20140303
  Transmission Date: 20141002
  Serious: No
  Sender: FDA-Public Use
  Company Number: US-ABBVIE-13P-163-1040202-00

PATIENT
  Age: 50 Year
  Sex: Female

DRUGS (10)
  1. HUMIRA [Suspect]
     Indication: PSORIASIS
     Dates: start: 201109
  2. LAMICTAL [Concomitant]
     Indication: PROPHYLAXIS
     Route: 048
  3. TOPROL [Concomitant]
     Indication: BLOOD PRESSURE
  4. ENDURE [Concomitant]
     Indication: CARDIOVASCULAR EVENT PROPHYLAXIS
  5. CAPTOPRIL [Concomitant]
     Indication: BLOOD PRESSURE
  6. ABILIFY [Concomitant]
     Indication: DEPRESSION
  7. WELLBUTRIN [Concomitant]
     Indication: DEPRESSION
     Dosage: 150 MG DAILY
     Route: 048
  8. NICARDIPINE [Concomitant]
     Indication: CARDIOVASCULAR EVENT PROPHYLAXIS
  9. LASIX [Concomitant]
     Indication: FLUID RETENTION
  10. ASA [Concomitant]
     Indication: PRODUCT USED FOR UNKNOWN INDICATION

REACTIONS (3)
  - Drug dose omission [Unknown]
  - Device malfunction [Unknown]
  - Tremor [Not Recovered/Not Resolved]
